FAERS Safety Report 6268031-7 (Version None)
Quarter: 2009Q3

REPORT INFORMATION
  Report Type: 
  Country: None (occurrence: None)
  Receive Date: 20090713
  Receipt Date: 20090629
  Transmission Date: 20100115
  Serious: Yes (Other)
  Sender: FDA-Public Use
  Company Number: DSA_33949_2009

PATIENT
  Sex: Female
  Weight: 59.4212 kg

DRUGS (3)
  1. CARDIZEM LA [Suspect]
     Indication: ATRIAL FIBRILLATION
     Dosage: 180 MG QD
     Dates: start: 20080101
  2. ARAVA [Suspect]
     Indication: ARTHRITIS
     Dosage: 10 MG QD, EVERY OTHER DAY
     Dates: end: 20090501
  3. ARAVA [Suspect]
     Indication: ARTHRITIS
     Dosage: 10 MG QD, EVERY OTHER DAY
     Dates: start: 20090501

REACTIONS (1)
  - MEDICATION RESIDUE [None]
